FAERS Safety Report 14349987 (Version 3)
Quarter: 2018Q2

REPORT INFORMATION
  Report Type: Report from Study
  Country: US (occurrence: US)
  Receive Date: 20180104
  Receipt Date: 20180423
  Transmission Date: 20180711
  Serious: Yes (Other)
  Sender: FDA-Public Use
  Company Number: US-JNJFOC-20180102268

PATIENT
  Age: 58 Year
  Sex: Female

DRUGS (9)
  1. IMBRUVICA [Suspect]
     Active Substance: IBRUTINIB
     Indication: CHRONIC LYMPHOCYTIC LEUKAEMIA
     Route: 048
     Dates: start: 20171222
  2. IMBRUVICA [Suspect]
     Active Substance: IBRUTINIB
     Indication: CHRONIC LYMPHOCYTIC LEUKAEMIA
     Route: 048
     Dates: start: 20171223
  3. DOXYCYCLINE HYCLATE. [Concomitant]
     Active Substance: DOXYCYCLINE HYCLATE
  4. IBUPROFEN. [Concomitant]
     Active Substance: IBUPROFEN
  5. GABAPENTIN. [Concomitant]
     Active Substance: GABAPENTIN
  6. POLYETHYLENE GLYCOL [Concomitant]
     Active Substance: POLYETHYLENE GLYCOLS
  7. SENNOSIDE A+B [Concomitant]
     Active Substance: SENNOSIDES A AND B
  8. DOCUSATE SODIUM. [Concomitant]
     Active Substance: DOCUSATE SODIUM
  9. MUCINEX [Concomitant]
     Active Substance: GUAIFENESIN

REACTIONS (5)
  - Diarrhoea [Unknown]
  - Peripheral swelling [Unknown]
  - Post procedural haemorrhage [Unknown]
  - Haemorrhoids [Unknown]
  - Contusion [Not Recovered/Not Resolved]

NARRATIVE: CASE EVENT DATE: 20171224
